FAERS Safety Report 8358836-0 (Version None)
Quarter: 2012Q2

REPORT INFORMATION
  Report Type: 
  Country: None (occurrence: None)
  Receive Date: 20120515
  Receipt Date: 20120508
  Transmission Date: 20120825
  Serious: Yes (Hospitalization, Other)
  Sender: FDA-Public Use
  Company Number: US-AMGEN-USASP2012029124

PATIENT
  Age: 59 Year
  Sex: Female

DRUGS (2)
  1. ENBREL [Suspect]
     Indication: RHEUMATOID ARTHRITIS
     Dosage: 50 MG, QWK
     Dates: start: 20090505
  2. ENBREL [Suspect]
     Indication: OSTEOPOROSIS

REACTIONS (3)
  - OSTEOPOROSIS [None]
  - INJECTION SITE HAEMATOMA [None]
  - BREAST CANCER [None]
